FAERS Safety Report 8072485-3 (Version None)
Quarter: 2012Q1

REPORT INFORMATION
  Report Type: 
  Country: None (occurrence: None)
  Receive Date: 20120126
  Receipt Date: 20120120
  Transmission Date: 20120608
  Serious: Yes (Other)
  Sender: FDA-Public Use
  Company Number: US-PFIZER INC-2012017216

PATIENT
  Sex: Male

DRUGS (1)
  1. VIAGRA [Suspect]
     Indication: ERECTILE DYSFUNCTION
     Dosage: 100 MG, AS NEEDED
     Route: 048
     Dates: end: 20111201

REACTIONS (6)
  - CYSTITIS [None]
  - CARDIAC DISORDER [None]
  - CARDIAC DISCOMFORT [None]
  - BRAIN NEOPLASM [None]
  - DYSKINESIA [None]
  - MUSCLE TWITCHING [None]
